FAERS Safety Report 9188363 (Version 1)
Quarter: 2012Q4

REPORT INFORMATION
  Report Type: 
  Country: US (occurrence: US)
  Receive Date: 20121205
  Receipt Date: 20121205
  Transmission Date: 20130627
  Serious: Yes (Other)
  Sender: FDA-Public Use
  Company Number: PHEH2012US022395

PATIENT
  Sex: Male

DRUGS (6)
  1. GLEEVEC [Suspect]
  2. METOPROLOL [Concomitant]
  3. TEMAZEPAM [Concomitant]
  4. CALCIUM [Concomitant]
  5. MULTIVITAMINS [Concomitant]
  6. TASIGNA [Concomitant]

REACTIONS (3)
  - Lower limb fracture [Unknown]
  - Hypersensitivity [Unknown]
  - Generalised oedema [Unknown]
